FAERS Safety Report 16422232 (Version 2)
Quarter: 2019Q2

REPORT INFORMATION
  Report Type: Spontaneous
  Country: US (occurrence: US)
  Receive Date: 20190612
  Receipt Date: 20190625
  Transmission Date: 20190711
  Serious: Yes (Other)
  Sender: FDA-Public Use
  Company Number: US-ASTRAZENECA-2018SF15091

PATIENT
  Age: 905 Month
  Sex: Female

DRUGS (29)
  1. NEXIUM [Suspect]
     Active Substance: ESOMEPRAZOLE MAGNESIUM
     Route: 048
     Dates: start: 20060719, end: 20141215
  2. PRILOSEC OTC [Suspect]
     Active Substance: OMEPRAZOLE MAGNESIUM
     Route: 048
     Dates: start: 200607, end: 201412
  3. METOPROLOL. [Concomitant]
     Active Substance: METOPROLOL
  4. LIPITOR [Concomitant]
     Active Substance: ATORVASTATIN CALCIUM
  5. LISINOPRIL. [Concomitant]
     Active Substance: LISINOPRIL
  6. TOPAMAX [Concomitant]
     Active Substance: TOPIRAMATE
  7. BYETTA [Concomitant]
     Active Substance: EXENATIDE
  8. KETOROLAC [Concomitant]
     Active Substance: KETOROLAC\KETOROLAC TROMETHAMINE
  9. NIZORAL [Concomitant]
     Active Substance: KETOCONAZOLE
  10. BEXTRA [Concomitant]
     Active Substance: VALDECOXIB
  11. LORAZEPAM. [Concomitant]
     Active Substance: LORAZEPAM
  12. ZETIA [Concomitant]
     Active Substance: EZETIMIBE
  13. DETROL [Concomitant]
     Active Substance: TOLTERODINE TARTRATE
  14. PREVACID 24 HR [Suspect]
     Active Substance: LANSOPRAZOLE
     Route: 065
     Dates: start: 200607, end: 201412
  15. PRIMIDONE. [Concomitant]
     Active Substance: PRIMIDONE
  16. CYMBALTA [Concomitant]
     Active Substance: DULOXETINE HYDROCHLORIDE
  17. AMLODIPINE [Concomitant]
     Active Substance: AMLODIPINE BESYLATE
  18. DOCUSATE [Concomitant]
     Active Substance: DOCUSATE
  19. ACIPHEX [Concomitant]
     Active Substance: RABEPRAZOLE SODIUM
  20. NEXIUM [Suspect]
     Active Substance: ESOMEPRAZOLE MAGNESIUM
     Route: 048
     Dates: start: 200607, end: 201412
  21. METFORMIN [Concomitant]
     Active Substance: METFORMIN HYDROCHLORIDE
  22. DICLOFENAC [Concomitant]
     Active Substance: DICLOFENAC
  23. PLAVIX [Concomitant]
     Active Substance: CLOPIDOGREL BISULFATE
  24. GLUCOVANCE [Concomitant]
     Active Substance: GLYBURIDE\METFORMIN HYDROCHLORIDE
  25. LOSARTAN. [Concomitant]
     Active Substance: LOSARTAN
  26. ALPRAZOLAM. [Concomitant]
     Active Substance: ALPRAZOLAM
  27. ASPIRIN. [Concomitant]
     Active Substance: ASPIRIN
  28. XANAX [Concomitant]
     Active Substance: ALPRAZOLAM
  29. FAMOTIDINE. [Concomitant]
     Active Substance: FAMOTIDINE

REACTIONS (8)
  - Renal failure [Unknown]
  - Dyspepsia [Unknown]
  - Acute kidney injury [Unknown]
  - Nephrogenic anaemia [Unknown]
  - Chronic kidney disease [Unknown]
  - End stage renal disease [Unknown]
  - Renal injury [Unknown]
  - Tubulointerstitial nephritis [Unknown]

NARRATIVE: CASE EVENT DATE: 201204
